FAERS Safety Report 9640014 (Version 1)
Quarter: 2013Q4

REPORT INFORMATION
  Report Type: Spontaneous
  Country: US (occurrence: None)
  Receive Date: 20131021
  Receipt Date: 20131021
  Transmission Date: 20140711
  Serious: Yes (Disabling)
  Sender: FDA-Public Use
  Company Number: None

PATIENT
  Age: 74 Year
  Sex: Female
  Weight: 70.31 kg

DRUGS (9)
  1. GE HYOSCYAMINE ER [Suspect]
     Indication: IRRITABLE BOWEL SYNDROME
     Dosage: 1 TABLET EVERY 12 HRS TWICE DAILY
     Route: 048
     Dates: start: 20130122, end: 20130915
  2. GE ATORVASTATIN [Concomitant]
  3. GE IRBESARTAN-HCTZ [Concomitant]
  4. PROPRANOLOL [Concomitant]
  5. GE METFORMIN [Concomitant]
  6. GE RANITIDINE [Concomitant]
  7. COMPLETE 50 + [Concomitant]
  8. PYCNOGENOL [Concomitant]
  9. POLICOSANOL [Concomitant]

REACTIONS (5)
  - Somnambulism [None]
  - Abnormal sleep-related event [None]
  - Joint injury [None]
  - Back injury [None]
  - Confusional state [None]
